FAERS Safety Report 6035386-8 (Version None)
Quarter: 2009Q1

REPORT INFORMATION
  Report Type: 
  Country: None (occurrence: None)
  Receive Date: 20090112
  Receipt Date: 20090112
  Transmission Date: 20090719
  Serious: Yes (Hospitalization)
  Sender: FDA-Public Use
  Company Number: None

PATIENT
  Age: 75 Year
  Sex: Male
  Weight: 65 kg

DRUGS (1)
  1. SUNITINIB [Suspect]
     Indication: RENAL CELL CARCINOMA
     Dosage: 50 MG EVERY DAY PO
     Route: 048
     Dates: start: 20081001

REACTIONS (10)
  - ASTHENIA [None]
  - CONFUSIONAL STATE [None]
  - FALL [None]
  - HEART RATE INCREASED [None]
  - HYPOPHAGIA [None]
  - MEMORY IMPAIRMENT [None]
  - NAUSEA [None]
  - ORTHOSTATIC HYPOTENSION [None]
  - SYNCOPE [None]
  - VOMITING [None]
